FAERS Safety Report 10526479 (Version 2)
Quarter: 2014Q4

REPORT INFORMATION
  Report Type: Spontaneous
  Country: TW (occurrence: TW)
  Receive Date: 20141020
  Receipt Date: 20141104
  Transmission Date: 20150528
  Serious: Yes (Other)
  Sender: FDA-Public Use
  Company Number: TW-BEH-2014045651

PATIENT
  Age: 45 Year
  Sex: Male
  Weight: 67 kg

DRUGS (7)
  1. BERIPLEX P/N [Suspect]
     Active Substance: COAGULATION FACTOR IX HUMAN\COAGULATION FACTOR VII HUMAN\COAGULATION FACTOR X HUMAN\PROTEIN C\PROTEIN S HUMAN\PROTHROMBIN
     Indication: ANTICOAGULANT THERAPY
     Dosage: 25 IU/KG
     Route: 042
     Dates: start: 20130920
  2. BETA BLOCKING AGENTS [Concomitant]
     Active Substance: UNSPECIFIED INGREDIENT
  3. VITAMIN K [Suspect]
     Active Substance: PHYTONADIONE
     Indication: ANTICOAGULANT THERAPY
     Route: 042
  4. OLMESARTAN [Concomitant]
     Active Substance: OLMESARTAN
  5. NICARDIPINE [Concomitant]
     Active Substance: NICARDIPINE
     Indication: ROUTINE HEALTH MAINTENANCE
     Dates: start: 20130920, end: 20130923
  6. WARFARIN [Concomitant]
     Active Substance: WARFARIN
     Indication: PROPHYLAXIS
  7. MANNITOL. [Concomitant]
     Active Substance: MANNITOL
     Indication: INTRACRANIAL PRESSURE INCREASED
     Dates: start: 20130920, end: 20130925

REACTIONS (5)
  - Flank pain [Recovered/Resolved]
  - Cerebral infarction [Recovered/Resolved]
  - Brain oedema [Recovered/Resolved]
  - Renal infarct [Recovered/Resolved]
  - Language disorder [Recovered/Resolved]

NARRATIVE: CASE EVENT DATE: 20130925
